FAERS Safety Report 4816865-5 (Version None)
Quarter: 2005Q4

REPORT INFORMATION
  Report Type: 
  Country: None (occurrence: None)
  Receive Date: 20051028
  Receipt Date: 20051019
  Transmission Date: 20060501
  Serious: Yes (Other)
  Sender: FDA-Public Use
  Company Number: 2005S1000208

PATIENT
  Age: 85 Year
  Sex: Female
  Weight: 64 kg

DRUGS (13)
  1. CUBICIN [Suspect]
     Indication: DEVICE RELATED INFECTION
     Dosage: 250 MG; Q24H; IV
     Route: 042
     Dates: start: 20050515, end: 20050601
  2. CUBICIN [Suspect]
     Indication: ENTEROCOCCAL INFECTION
     Dosage: 250 MG; Q24H; IV
     Route: 042
     Dates: start: 20050515, end: 20050601
  3. CUBICIN [Suspect]
     Indication: OSTEOMYELITIS
     Dosage: 250 MG; Q24H; IV
     Route: 042
     Dates: start: 20050515, end: 20050601
  4. CUBICIN [Suspect]
     Indication: STAPHYLOCOCCAL OSTEOMYELITIS
     Dosage: 250 MG; Q24H; IV
     Route: 042
     Dates: start: 20050515, end: 20050601
  5. VICODIN [Concomitant]
  6. ACETAMINOPHEN [Concomitant]
  7. SENOKOT [Concomitant]
  8. METOPROLOL [Concomitant]
  9. LOSARTAN [Concomitant]
  10. FUROSEMIDE [Concomitant]
  11. POTASSIUM CHLORIDE [Concomitant]
  12. HEPARIN [Concomitant]
  13. ZOLPIDEM [Concomitant]

REACTIONS (3)
  - LEG AMPUTATION [None]
  - RENAL FAILURE [None]
  - RHABDOMYOLYSIS [None]
